FAERS Safety Report 5330226-4 (Version None)
Quarter: 2007Q2

REPORT INFORMATION
  Report Type: 
  Country: None (occurrence: None)
  Receive Date: 20070521
  Receipt Date: 20070508
  Transmission Date: 20071010
  Serious: Yes (Other)
  Sender: FDA-Public Use
  Company Number: NL-ELI_LILLY_AND_COMPANY-NL200703005545

PATIENT
  Age: 13 Year
  Sex: Male
  Weight: 35.7 kg

DRUGS (5)
  1. PARACETAMOL [Concomitant]
     Indication: MIGRAINE
  2. STRATTERA [Suspect]
     Indication: ATTENTION DEFICIT/HYPERACTIVITY DISORDER
     Dosage: 40 MG, UNK
     Dates: start: 20050901, end: 20050918
  3. STRATTERA [Suspect]
     Dosage: 25 MG, UNK
     Dates: start: 20050919, end: 20061022
  4. STRATTERA [Suspect]
     Dosage: 40 MG, UNK
     Dates: start: 20061023
  5. MELATONIN [Concomitant]
     Indication: SLEEP DISORDER
     Dosage: 1.5 MG, UNK

REACTIONS (4)
  - ARRHYTHMIA [None]
  - DYSPNOEA [None]
  - EXERCISE TOLERANCE DECREASED [None]
  - HEART RATE INCREASED [None]
